FAERS Safety Report 19961000 (Version 2)
Quarter: 2021Q4

REPORT INFORMATION
  Report Type: Spontaneous
  Country: ES (occurrence: ES)
  Receive Date: 20211016
  Receipt Date: 20211102
  Transmission Date: 20220304
  Serious: Yes (Other)
  Sender: FDA-Public Use
  Company Number: ES-BAYER-2021A226035

PATIENT

DRUGS (1)
  1. EYLEA [Suspect]
     Active Substance: AFLIBERCEPT
     Indication: Product used for unknown indication
     Dosage: AFFECTED EYE, DOSE OR TOTAL NUMBER OF INJECTIONS WAS NOT REPORTED
     Dates: start: 20211005, end: 20211005

REACTIONS (3)
  - Blindness [Unknown]
  - Intraocular pressure increased [Unknown]
  - Device use issue [Unknown]

NARRATIVE: CASE EVENT DATE: 20211005
